FAERS Safety Report 13339573 (Version 1)
Quarter: 2017Q1

REPORT INFORMATION
  Report Type: Spontaneous
  Country: DE (occurrence: DE)
  Receive Date: 20170315
  Receipt Date: 20170315
  Transmission Date: 20170428
  Serious: Yes (Other)
  Sender: FDA-Public Use
  Company Number: GXKR2017DE001633

PATIENT
  Age: 70 Year
  Sex: Female

DRUGS (1)
  1. OLANZAPIN 1 A PHARMA [Suspect]
     Active Substance: OLANZAPINE
     Indication: PRODUCT USED FOR UNKNOWN INDICATION
     Dosage: UNK UKN, UNK
     Route: 048

REACTIONS (2)
  - Loss of consciousness [Recovered/Resolved]
  - Expired product administered [Unknown]
